FAERS Safety Report 10485348 (Version 1)
Quarter: 2014Q3

REPORT INFORMATION
  Report Type: Report from Study
  Country: US (occurrence: US)
  Receive Date: 20140930
  Receipt Date: 20140930
  Transmission Date: 20150326
  Serious: Yes (Other)
  Sender: FDA-Public Use
  Company Number: US-ALEXION PHARMACEUTICALS INC-A201002378

PATIENT

DRUGS (1)
  1. SOLIRIS [Suspect]
     Active Substance: ECULIZUMAB
     Indication: PAROXYSMAL NOCTURNAL HAEMOGLOBINURIA

REACTIONS (10)
  - Headache [Unknown]
  - Central venous catheterisation [Unknown]
  - Haemoglobin decreased [Unknown]
  - Haemoglobinuria [Unknown]
  - White blood cell count decreased [Unknown]
  - Quality of life decreased [Unknown]
  - Fatigue [Unknown]
  - Pallor [Unknown]
  - Platelet count decreased [Unknown]
  - Arthralgia [Unknown]
